FAERS Safety Report 6691664-0 (Version None)
Quarter: 2010Q2

REPORT INFORMATION
  Report Type: 
  Country: None (occurrence: None)
  Receive Date: 20100422
  Receipt Date: 20090528
  Transmission Date: 20101027
  Serious: No
  Sender: FDA-Public Use
  Company Number: US-ASTRAZENECA-2009UW13599

PATIENT
  Age: 70 Year
  Sex: Female

DRUGS (7)
  1. TOPROL-XL [Suspect]
     Route: 048
     Dates: start: 20070101
  2. LOPRESSOR [Suspect]
     Route: 048
  3. CRESTOR [Concomitant]
  4. LIPITOR [Concomitant]
  5. VYTORIN [Concomitant]
  6. PLAVIX [Concomitant]
  7. FOLVITE [Concomitant]

REACTIONS (2)
  - BLOOD PRESSURE INCREASED [None]
  - MEDICATION ERROR [None]
